FAERS Safety Report 7955263-2 (Version None)
Quarter: 2011Q4

REPORT INFORMATION
  Report Type: 
  Country: None (occurrence: None)
  Receive Date: 20111202
  Receipt Date: 20111201
  Transmission Date: 20120403
  Serious: Yes (Other)
  Sender: FDA-Public Use
  Company Number: US-ABBOTT-11P-163-0866153-00

PATIENT
  Age: 31 Year
  Sex: Female

DRUGS (3)
  1. NORVIR [Suspect]
     Indication: ANTIRETROVIRAL THERAPY
     Route: 048
  2. TRUVADA [Suspect]
     Indication: ANTIRETROVIRAL THERAPY
     Route: 048
  3. PREZISTA [Suspect]
     Indication: ANTIRETROVIRAL THERAPY
     Route: 048

REACTIONS (1)
  - UTERINE LEIOMYOMA [None]
